APPROVED DRUG PRODUCT: ALPRAZOLAM
Active Ingredient: ALPRAZOLAM
Strength: 1MG
Dosage Form/Route: TABLET, EXTENDED RELEASE;ORAL
Application: A077725 | Product #002
Applicant: ANI PHARMACEUTICALS INC
Approved: Jul 31, 2006 | RLD: No | RS: No | Type: DISCN